FAERS Safety Report 15274961 (Version 1)
Quarter: 2018Q3

REPORT INFORMATION
  Report Type: Spontaneous
  Country: US (occurrence: US)
  Receive Date: 20180814
  Receipt Date: 20180814
  Transmission Date: 20181010
  Serious: No
  Sender: FDA-Public Use
  Company Number: US-BAYER-2018-150875

PATIENT
  Age: 66 Year
  Sex: Male
  Weight: 82 kg

DRUGS (1)
  1. MIRALAX [Suspect]
     Active Substance: POLYETHYLENE GLYCOL 3350
     Dosage: 1 TABLESPOON DOSE
     Route: 048

REACTIONS (4)
  - Product prescribing issue [None]
  - Incorrect drug administration duration [Unknown]
  - Incorrect dosage administered [None]
  - Product prescribing issue [Unknown]
